FAERS Safety Report 8033441-4 (Version None)
Quarter: 2012Q1

REPORT INFORMATION
  Report Type: 
  Country: None (occurrence: None)
  Receive Date: 20120110
  Receipt Date: 20120109
  Transmission Date: 20120608
  Serious: Yes (Death)
  Sender: FDA-Public Use
  Company Number: CA-ROCHE-1028600

PATIENT
  Sex: Male

DRUGS (3)
  1. ACTONEL [Concomitant]
  2. XELODA [Suspect]
     Indication: PANCREATIC CARCINOMA
     Route: 048
     Dates: start: 20110701
  3. PANTOPRAZOLE [Concomitant]

REACTIONS (1)
  - DEATH [None]
